FAERS Safety Report 16021207 (Version 1)
Quarter: 2019Q1

REPORT INFORMATION
  Report Type: Spontaneous
  Country: US (occurrence: US)
  Receive Date: 20190228
  Receipt Date: 20190228
  Transmission Date: 20190418
  Serious: Yes (Death)
  Sender: FDA-Public Use
  Company Number: None

PATIENT
  Age: 63 Year
  Sex: Female

DRUGS (1)
  1. NEULASTA [Suspect]
     Active Substance: PEGFILGRASTIM
     Indication: UTERINE CANCER
     Route: 058
     Dates: start: 20180606, end: 20190123

REACTIONS (1)
  - Death [None]

NARRATIVE: CASE EVENT DATE: 20190208
